FAERS Safety Report 13005408 (Version 2)
Quarter: 2016Q4

REPORT INFORMATION
  Report Type: Report from Study
  Country: IT (occurrence: IT)
  Receive Date: 20161207
  Receipt Date: 20161216
  Transmission Date: 20170207
  Serious: Yes (Other)
  Sender: FDA-Public Use
  Company Number: IT-TEVA-716139ACC

PATIENT
  Age: 14 Year

DRUGS (1)
  1. VERAPAMIL [Suspect]
     Active Substance: VERAPAMIL HYDROCHLORIDE
     Dosage: 1 MG/KG DAILY;

REACTIONS (4)
  - Product use issue [Unknown]
  - Seizure [Unknown]
  - Off label use of device [Unknown]
  - Condition aggravated [Unknown]
